FAERS Safety Report 11788028 (Version 3)
Quarter: 2016Q1

REPORT INFORMATION
  Report Type: Spontaneous
  Country: BR (occurrence: BR)
  Receive Date: 20151130
  Receipt Date: 20160113
  Transmission Date: 20160525
  Serious: Yes (Life-Threatening, Other)
  Sender: FDA-Public Use
  Company Number: PHHY2015BR155920

PATIENT
  Age: 66 Year
  Sex: Female
  Weight: 50 kg

DRUGS (5)
  1. FORASEQ [Suspect]
     Active Substance: BUDESONIDE\FORMOTEROL FUMARATE
     Dosage: UNK, BID
     Route: 055
  2. ACLASTA [Suspect]
     Active Substance: ZOLEDRONIC ACID
     Indication: OSTEOPOROSIS
     Route: 065
     Dates: start: 2014
  3. FORASEQ [Suspect]
     Active Substance: BUDESONIDE\FORMOTEROL FUMARATE
     Indication: ASTHMA
     Dosage: UNK, QD
     Route: 055
  4. CALCIUM +VIT D [Concomitant]
     Active Substance: CALCIUM\VITAMIN D
     Indication: OSTEOPOROSIS
     Route: 065
  5. FORASEQ [Suspect]
     Active Substance: BUDESONIDE\FORMOTEROL FUMARATE
     Indication: CHRONIC OBSTRUCTIVE PULMONARY DISEASE
     Dosage: UNK, BID
     Route: 055

REACTIONS (19)
  - Dysphonia [Not Recovered/Not Resolved]
  - Vision blurred [Unknown]
  - Dizziness [Unknown]
  - Asthma [Unknown]
  - Fatigue [Unknown]
  - Pharyngeal injury [Unknown]
  - Nausea [Not Recovered/Not Resolved]
  - Oropharyngeal pain [Not Recovered/Not Resolved]
  - Dysgeusia [Unknown]
  - Feeding disorder [Unknown]
  - Tongue injury [Unknown]
  - Tongue discolouration [Not Recovered/Not Resolved]
  - Apparent death [Unknown]
  - Pyrexia [Recovered/Resolved]
  - Dysphagia [Unknown]
  - Lung infection [Recovered/Resolved]
  - Pneumonia [Recovered/Resolved]
  - Jaundice [Unknown]
  - Asthma [Recovered/Resolved]

NARRATIVE: CASE EVENT DATE: 201510
